FAERS Safety Report 14709409 (Version 2)
Quarter: 2018Q2

REPORT INFORMATION
  Report Type: Spontaneous
  Country: US (occurrence: US)
  Receive Date: 20180403
  Receipt Date: 20180417
  Transmission Date: 20180711
  Serious: Yes (Other)
  Sender: FDA-Public Use
  Company Number: US-ASTRAZENECA-2018SE39039

PATIENT
  Age: 1035 Month
  Sex: Female

DRUGS (1)
  1. SYMBICORT [Suspect]
     Active Substance: BUDESONIDE\FORMOTEROL FUMARATE DIHYDRATE
     Indication: CHRONIC OBSTRUCTIVE PULMONARY DISEASE
     Dosage: 160/4.5 MCG 120 DOSES, UNKNOWN UNKNOWN
     Route: 055
     Dates: start: 201801

REACTIONS (5)
  - Upper limb fracture [Recovering/Resolving]
  - Device issue [Unknown]
  - Hip fracture [Recovering/Resolving]
  - Wrong technique in product usage process [Unknown]
  - Fall [Unknown]

NARRATIVE: CASE EVENT DATE: 201803
